FAERS Safety Report 7588745-6 (Version None)
Quarter: 2011Q3

REPORT INFORMATION
  Report Type: 
  Country: None (occurrence: None)
  Receive Date: 20110705
  Receipt Date: 20110624
  Transmission Date: 20111222
  Serious: Yes (Other)
  Sender: FDA-Public Use
  Company Number: IE-ASTELLAS-2011EU002003

PATIENT
  Sex: Female

DRUGS (2)
  1. TACROLIMUS [Suspect]
     Indication: DERMATITIS ATOPIC
     Dosage: 0.1 %, UNKNOWN/D
     Route: 065
     Dates: start: 20080101
  2. BETNOVATE [Concomitant]
     Indication: ECZEMA
     Dosage: UNK
     Route: 061

REACTIONS (1)
  - LYMPHADENOPATHY [None]
